FAERS Safety Report 11400577 (Version 2)
Quarter: 2018Q1

REPORT INFORMATION
  Report Type: Report from Study
  Country: US (occurrence: US)
  Receive Date: 20150820
  Receipt Date: 20180208
  Transmission Date: 20180508
  Serious: Yes (Hospitalization)
  Sender: FDA-Public Use
  Company Number: US-UCBSA-2015026286

PATIENT
  Age: 35 Year
  Sex: Female
  Weight: 60.8 kg

DRUGS (11)
  1. BOOSTRIX [Concomitant]
     Active Substance: TETANUS TOXOID, REDUCED DIPHTHERIA TOXOID AND ACELLULAR PERTUSSIS VACCINE, ADSORBED ANTIGENS
     Indication: PRODUCT USED FOR UNKNOWN INDICATION
     Dosage: 1 SHOT 1 DAY
     Dates: start: 20150310, end: 20150310
  2. PROBIOTICS NOS [Concomitant]
     Active Substance: PROBIOTICS NOS
     Indication: PRODUCT USED FOR UNKNOWN INDICATION
     Dosage: UNK
     Route: 048
     Dates: start: 20140708, end: 20150415
  3. ESTROGEN NOS [Concomitant]
     Active Substance: ESTROGENS
     Indication: INFERTILITY
     Dosage: UNK
     Route: 061
     Dates: start: 20140701, end: 20140920
  4. CERTOLIZUMAB PEGOL RA [Suspect]
     Active Substance: CERTOLIZUMAB PEGOL
     Indication: CROHN^S DISEASE
     Dosage: 200 MG, 2X/MONTH
     Dates: start: 20090701, end: 20150415
  5. PRENATAL VITAMINS [Concomitant]
     Active Substance: VITAMINS
     Indication: PRODUCT USED FOR UNKNOWN INDICATION
     Dosage: 1 DF, ONCE DAILY (QD)
     Route: 048
     Dates: start: 20140708, end: 20150415
  6. TYLENOL EXTRA STRENGTH [Concomitant]
     Active Substance: ACETAMINOPHEN
     Dosage: 1 DF, AS NEEDED (PRN)
     Route: 048
     Dates: start: 20150109, end: 20150415
  7. PROGESTERONE. [Concomitant]
     Active Substance: PROGESTERONE
     Indication: INFERTILITY
     Dosage: 600 MG, ONCE DAILY (QD)
     Route: 067
     Dates: start: 20140719, end: 20140920
  8. TYLENOL EXTRA STRENGTH [Concomitant]
     Active Substance: ACETAMINOPHEN
     Indication: HEADACHE
     Dosage: 1 DF, 2X/DAY (BID)
     Route: 048
     Dates: start: 20140708, end: 20140909
  9. TUMS [Concomitant]
     Active Substance: CALCIUM CARBONATE
     Indication: DYSPEPSIA
     Dosage: 1 PILL
     Route: 048
     Dates: start: 20150109, end: 20150330
  10. FISH OIL W/VITAMIN D NOS [Concomitant]
     Indication: PRODUCT USED FOR UNKNOWN INDICATION
     Dosage: 1 PILL 3.5 WKS
     Route: 048
     Dates: start: 20140708, end: 20150415
  11. DIPHENHYDRAMINE. [Concomitant]
     Active Substance: DIPHENHYDRAMINE
     Indication: SLEEP DISORDER
     Dosage: 1 PILL
     Route: 048
     Dates: start: 20150109, end: 20150330

REACTIONS (4)
  - Herpes zoster [Recovered/Resolved]
  - Pregnancy [Unknown]
  - Nasopharyngitis [Recovered/Resolved]
  - Sinusitis [Recovered/Resolved]

NARRATIVE: CASE EVENT DATE: 2014
